FAERS Safety Report 4773431-8 (Version None)
Quarter: 2005Q3

REPORT INFORMATION
  Report Type: 
  Country: None (occurrence: None)
  Receive Date: 20050914
  Receipt Date: 20041109
  Transmission Date: 20060218
  Serious: Yes (Other)
  Sender: FDA-Public Use
  Company Number: 163-20785-04110190

PATIENT
  Age: 65 Year
  Sex: Male

DRUGS (12)
  1. THALOMID [Suspect]
     Indication: POST HERPETIC NEURALGIA
     Dosage: 100 MG, QHS, ORAL
     Route: 048
     Dates: start: 20041021, end: 20041103
  2. ATENOLOL [Concomitant]
  3. NEXIUM [Concomitant]
  4. FLOMAX [Concomitant]
  5. IMDUR [Concomitant]
  6. ALTACE [Concomitant]
  7. LIPITOR [Concomitant]
  8. AMBIEN [Concomitant]
  9. REMERON [Concomitant]
  10. ASPIRIN [Concomitant]
  11. NITROQUICK (GLYCERYL TRINITRATE) [Concomitant]
  12. DOXYCYCLINE (DOXYCYCLINE) (CAPSULES) [Concomitant]

REACTIONS (1)
  - HYPOTENSION [None]
